FAERS Safety Report 8605789-3 (Version None)
Quarter: 2012Q3

REPORT INFORMATION
  Report Type: 
  Country: None (occurrence: None)
  Receive Date: 20120807
  Receipt Date: 20120730
  Transmission Date: 20120928
  Serious: Yes (Other)
  Sender: FDA-Public Use
  Company Number: AUR-APL-2012-03292

PATIENT
  Age: 69 Year
  Sex: Male
  Weight: 85 kg

DRUGS (11)
  1. FLUTICASONE PROPIONAGTE (FLUTICASONE PROPIONATE) [Concomitant]
  2. SIMVASTATIN [Suspect]
     Indication: PRODUCT USED FOR UNKNOWN INDICATION
     Dosage: UNKNOWN
     Dates: start: 20120622
  3. DEXAMETHASONE SODIUM PHOSPHATE [Concomitant]
  4. FINASTERIDE [Concomitant]
  5. LANSOPRAZOLE [Concomitant]
  6. VENTOLIN (VENTOLIN) [Concomitant]
  7. VISCOTEARS (CARBOMER) [Concomitant]
  8. TERAZOSIN HCL [Concomitant]
  9. BUDESONIDE [Concomitant]
  10. AMOXICILLIN [Concomitant]
  11. CALCIUM CARBONATE [Concomitant]

REACTIONS (2)
  - CHEST DISCOMFORT [None]
  - DYSPNOEA [None]
